FAERS Safety Report 14671982 (Version 1)
Quarter: 2018Q1

REPORT INFORMATION
  Report Type: Spontaneous
  Country: US (occurrence: US)
  Receive Date: 20180323
  Receipt Date: 20180323
  Transmission Date: 20180509
  Serious: Yes (Death, Life-Threatening, Hospitalization, Other)
  Sender: FDA-Public Use
  Company Number: US-AXELLIA-001485

PATIENT
  Age: 64 Year
  Sex: Male

DRUGS (1)
  1. VANCOMYCIN [Suspect]
     Active Substance: VANCOMYCIN
     Indication: DEVICE RELATED INFECTION

REACTIONS (4)
  - Drug reaction with eosinophilia and systemic symptoms [Fatal]
  - Cytomegalovirus gastrointestinal infection [Fatal]
  - Multiple organ dysfunction syndrome [Fatal]
  - Enterocolitis [Fatal]
